FAERS Safety Report 26099819 (Version 1)
Quarter: 2025Q4

REPORT INFORMATION
  Report Type: Spontaneous
  Country: CN (occurrence: CN)
  Receive Date: 20251128
  Receipt Date: 20251128
  Transmission Date: 20260117
  Serious: No
  Sender: ALKEM
  Company Number: CN-ALKEM LABORATORIES LIMITED-CN-ALKEM-2025-02480

PATIENT
  Age: 15 Year
  Sex: Male

DRUGS (5)
  1. OLANZAPINE [Suspect]
     Active Substance: OLANZAPINE
     Indication: Delirium
     Dosage: 5 MG/DAY
     Route: 065
  2. CYCLOPHOSPHAMIDE [Concomitant]
     Active Substance: CYCLOPHOSPHAMIDE
     Indication: Neuropsychiatric lupus
     Dosage: 0.4 GRAM, ONCE WEEKLY
     Route: 065
  3. HYDROCORTISONE [Concomitant]
     Active Substance: HYDROCORTISONE
     Indication: Systemic lupus erythematosus
     Dosage: 100 MILLIGRAM, BID (TWICE DAILY)
     Route: 042
  4. LEVETIRACETAM [Concomitant]
     Active Substance: LEVETIRACETAM
     Indication: Neuropsychiatric lupus
     Dosage: 500 MILLIGRAM, BID (TWICE DAILY)
     Route: 065
  5. METHYLPREDNISOLONE [Concomitant]
     Active Substance: METHYLPREDNISOLONE
     Indication: Neuropsychiatric lupus
     Dosage: 80 MG/DAY
     Route: 065

REACTIONS (1)
  - Catatonia [Recovered/Resolved]
